FAERS Safety Report 4450839-1 (Version None)
Quarter: 2004Q3

REPORT INFORMATION
  Report Type: 
  Country: None (occurrence: None)
  Receive Date: 20040916
  Receipt Date: 20011002
  Transmission Date: 20050211
  Serious: Yes (Other)
  Sender: FDA-Public Use
  Company Number: US-BRISTOL-MYERS SQUIBB COMPANY-11041720

PATIENT
  Age: 31 Year
  Sex: Female

DRUGS (14)
  1. STADOL [Suspect]
     Dosage: DOSING: 10MG/ML
     Route: 045
  2. STADOL [Suspect]
     Dosage: DOSING: 2MG - 4MG
  3. HYDROCODONE TARTRATE+ACETAMINOPHEN [Concomitant]
  4. PHENERGAN HCL [Concomitant]
  5. ZOLOFT [Concomitant]
  6. AMBIEN [Concomitant]
  7. INDERAL [Concomitant]
  8. NAPROXEN SODIUM [Concomitant]
  9. CYCLOBENZAPRINE HCL [Concomitant]
  10. AMITRIPTYLINE HCL [Concomitant]
  11. ALPRAZOLAM [Concomitant]
  12. VIOXX [Concomitant]
  13. DIAZEPAM [Concomitant]
  14. MEPERGAN [Concomitant]

REACTIONS (1)
  - DEPENDENCE [None]
